FAERS Safety Report 5330794-2 (Version None)
Quarter: 2007Q2

REPORT INFORMATION
  Report Type: 
  Country: None (occurrence: None)
  Receive Date: 20070516
  Receipt Date: 20070508
  Transmission Date: 20071010
  Serious: Yes (Other)
  Sender: FDA-Public Use
  Company Number: 2007AP000493

PATIENT
  Age: 35 Year
  Sex: Male

DRUGS (3)
  1. ZONISAMIDE [Suspect]
     Indication: WEIGHT CONTROL
  2. PHENTERMINE HYDROCHLORIDE [Concomitant]
  3. TOPIRAMATE [Concomitant]

REACTIONS (2)
  - CHOLESTASIS [None]
  - VANISHING BILE DUCT SYNDROME [None]
